FAERS Safety Report 14901190 (Version 2)
Quarter: 2018Q2

REPORT INFORMATION
  Report Type: Spontaneous
  Country: ZA (occurrence: ZA)
  Receive Date: 20180516
  Receipt Date: 20180521
  Transmission Date: 20180711
  Serious: Yes (Other)
  Sender: FDA-Public Use
  Company Number: ZA-PFIZER INC-2018196305

PATIENT
  Age: 36 Year
  Sex: Female

DRUGS (14)
  1. EPITEC [Suspect]
     Active Substance: LAMOTRIGINE
     Dosage: 100 MG, UNK
  2. SPIRACTIN /00006201/ [Suspect]
     Active Substance: SPIRONOLACTONE
     Dosage: 25 MG, UNK
  3. YELATE [Suspect]
     Active Substance: DULOXETINE HYDROCHLORIDE
     Dosage: 60 MG, UNK
  4. METHOTREXATE SODIUM. [Suspect]
     Active Substance: METHOTREXATE SODIUM
     Dosage: 2.5 MG, UNK
  5. ADCO-SIMVASTATIN [Suspect]
     Active Substance: SIMVASTATIN
     Dosage: 10 MG, UNK
  6. NIVAQUINE /00001001/ [Suspect]
     Active Substance: CHLOROQUINE
     Dosage: 200 MG, UNK
  7. ALTOSEC /00661201/ [Suspect]
     Active Substance: OMEPRAZOLE
     Dosage: 20 MG, UNK
  8. MAXALT [Suspect]
     Active Substance: RIZATRIPTAN BENZOATE
     Dosage: 10 MG, UNK
  9. EPITEC [Suspect]
     Active Substance: LAMOTRIGINE
     Dosage: 50 MG, UNK
  10. FLUANXOL /00109702/ [Suspect]
     Active Substance: FLUPENTIXOL
     Dosage: 1 MG, UNK
  11. ADCO ZOPIMED [Suspect]
     Active Substance: ZOPICLONE
     Dosage: 7.5 MG, UNK
  12. BILOCOR [Suspect]
     Active Substance: BISOPROLOL FUMARATE
     Dosage: 5 MG, UNK
  13. TOPALEX [Suspect]
     Active Substance: TOPIRAMATE
     Dosage: 100 MG, UNK
  14. TRANQIPAM [Suspect]
     Active Substance: LORAZEPAM
     Dosage: 2.5 MG, UNK

REACTIONS (1)
  - Systemic lupus erythematosus [Unknown]
